FAERS Safety Report 17252592 (Version 6)
Quarter: 2020Q1

REPORT INFORMATION
  Report Type: Report from Study
  Country: IT (occurrence: IT)
  Receive Date: 20200109
  Receipt Date: 20200305
  Transmission Date: 20200409
  Serious: Yes (Hospitalization)
  Sender: FDA-Public Use
  Company Number: IT-EMD SERONO-9138705

PATIENT
  Age: 79 Year
  Sex: Female

DRUGS (11)
  1. PREGABALIN. [Suspect]
     Active Substance: PREGABALIN
     Indication: DRUG ABUSE
     Route: 048
     Dates: start: 20191124, end: 20191124
  2. FERRO-GRAD [Suspect]
     Active Substance: FERROUS SULFATE
     Indication: DRUG ABUSE
     Route: 048
     Dates: start: 20191124, end: 20191124
  3. BISOPROLOL FUMARATE. [Suspect]
     Active Substance: BISOPROLOL FUMARATE
     Indication: DRUG ABUSE
     Route: 048
     Dates: start: 20191124, end: 20191124
  4. ALLOPURINOL. [Suspect]
     Active Substance: ALLOPURINOL
     Indication: DRUG ABUSE
     Route: 048
     Dates: start: 20191124, end: 20191124
  5. VASEXTEN [Suspect]
     Active Substance: BARNIDIPINE HYDROCHLORIDE
     Indication: DRUG ABUSE
     Route: 048
     Dates: start: 20191124, end: 20191124
  6. RAMIPRIL. [Suspect]
     Active Substance: RAMIPRIL
     Indication: DRUG ABUSE
     Route: 048
     Dates: start: 20191124, end: 20191124
  7. METFORMIN [Suspect]
     Active Substance: METFORMIN HYDROCHLORIDE
     Indication: DRUG ABUSE
     Route: 048
     Dates: start: 20191124, end: 20191124
  8. VENLAFAXINE [Suspect]
     Active Substance: VENLAFAXINE HYDROCHLORIDE
     Indication: DRUG ABUSE
     Route: 048
     Dates: start: 20191124, end: 20191124
  9. LUVION                             /00252501/ [Suspect]
     Active Substance: CANRENOIC ACID
     Indication: DRUG ABUSE
     Route: 048
     Dates: start: 20191124, end: 20191124
  10. LASIX [Suspect]
     Active Substance: FUROSEMIDE
     Indication: DRUG ABUSE
     Route: 048
     Dates: start: 20191124, end: 20191124
  11. ACETYLSALICYLIC ACID [Suspect]
     Active Substance: ASPIRIN
     Indication: DRUG ABUSE
     Route: 048
     Dates: start: 20191124, end: 20191124

REACTIONS (3)
  - Drug abuse [Recovering/Resolving]
  - Sopor [Recovering/Resolving]
  - Lactic acidosis [Recovering/Resolving]

NARRATIVE: CASE EVENT DATE: 20191124
